FAERS Safety Report 5283279-6 (Version None)
Quarter: 2007Q2

REPORT INFORMATION
  Report Type: 
  Country: None (occurrence: None)
  Receive Date: 20070402
  Receipt Date: 20070326
  Transmission Date: 20071010
  Serious: Yes (Hospitalization, Disabling)
  Sender: FDA-Public Use
  Company Number: 2007UW02929

PATIENT
  Age: 77 Year
  Sex: Female
  Weight: 66.8 kg

DRUGS (20)
  1. FASLODEX [Suspect]
     Indication: BREAST CANCER FEMALE
     Route: 030
     Dates: start: 20060106
  2. PAIN MEDICATIONS [Concomitant]
  3. DIOVAN [Concomitant]
     Route: 048
  4. TRICOR [Concomitant]
     Route: 048
  5. CLONIDINE [Concomitant]
     Route: 048
  6. LOPRESSOR [Concomitant]
     Route: 048
  7. OXYCONTIN [Concomitant]
  8. LISINOPRIL [Concomitant]
     Route: 048
  9. TRIAMTERENE AND HYDROCHLOROTHIAZIDE [Concomitant]
     Dosage: 37.5/25 QD
  10. ASPIRIN [Concomitant]
     Route: 048
  11. OXYCODONE HCL [Concomitant]
  12. CYCLOBENZAPRINE HCL [Concomitant]
     Route: 048
  13. MECLIZINE [Concomitant]
     Route: 048
  14. PROCHLORPERAZINE [Concomitant]
     Route: 048
  15. CENTRUM SILVER [Concomitant]
  16. OCUVITE [Concomitant]
  17. VITAMIN E [Concomitant]
  18. OS-CAL [Concomitant]
  19. PRILOSEC [Concomitant]
     Route: 048
  20. ZANTAC [Concomitant]

REACTIONS (4)
  - ANAEMIA [None]
  - ANGINA UNSTABLE [None]
  - CARDIAC FAILURE CONGESTIVE [None]
  - MYOCARDIAL INFARCTION [None]
